FAERS Safety Report 25340782 (Version 4)
Quarter: 2025Q4

REPORT INFORMATION
  Report Type: Spontaneous
  Country: EU (occurrence: EU)
  Receive Date: 20250521
  Receipt Date: 20251014
  Transmission Date: 20260118
  Serious: Yes (Other)
  Sender: CHIESI
  Company Number: EU-CHIESI-2025CHF03253

PATIENT
  Age: 15 Year
  Sex: Female

DRUGS (2)
  1. METRELEPTIN [Suspect]
     Active Substance: METRELEPTIN
     Indication: Congenital generalised lipodystrophy
     Dosage: 2.5 MILLIGRAM
     Route: 058
  2. METRELEPTIN [Suspect]
     Active Substance: METRELEPTIN
     Dosage: 2.9 MILLIGRAM
     Route: 058

REACTIONS (5)
  - Hypothalamo-pituitary disorder [Unknown]
  - Incorrect dose administered [Unknown]
  - Hepatic enzyme increased [Unknown]
  - Weight increased [Unknown]
  - Blood triglycerides increased [Unknown]
